FAERS Safety Report 9086312 (Version 1)
Quarter: 2013Q1

REPORT INFORMATION
  Report Type: Spontaneous
  Country: US (occurrence: US)
  Receive Date: 20130131
  Receipt Date: 20130131
  Transmission Date: 20140127
  Serious: Yes (Other)
  Sender: FDA-Public Use
  Company Number: US-BAYER-2013-011271

PATIENT
  Sex: Female

DRUGS (9)
  1. YASMIN [Suspect]
  2. YAZ [Suspect]
  3. PROPOXYPHENE NAPSYLATE W/ACETAMINOPHENE [Concomitant]
     Dosage: 100/650
     Dates: start: 20070118
  4. PROPOXYPHENE NAPSYLATE W/ACETAMINOPHENE [Concomitant]
     Dosage: 100/650
     Dates: start: 20070125
  5. METHYLPREDNISOLONE [Concomitant]
     Dosage: 4 MG, UNK
     Dates: start: 20070305
  6. AZITHROMYCIN [Concomitant]
     Dosage: 250 MG, UNK
     Dates: start: 20070313
  7. SKELAXIN [Concomitant]
     Dosage: 800 MG, UNK
     Dates: start: 20070305
  8. SERTRALINE [Concomitant]
     Dosage: 50 MG, UNK
     Dates: start: 20070323
  9. DARVOCET [Concomitant]

REACTIONS (3)
  - Pulmonary embolism [Recovered/Resolved]
  - Deep vein thrombosis [None]
  - Biliary dyskinesia [None]
